APPROVED DRUG PRODUCT: PROPARACAINE HYDROCHLORIDE
Active Ingredient: PROPARACAINE HYDROCHLORIDE
Strength: 0.5%
Dosage Form/Route: SOLUTION/DROPS;OPHTHALMIC
Application: A219294 | Product #001 | TE Code: AT
Applicant: MICRO LABS LTD
Approved: Oct 20, 2025 | RLD: No | RS: No | Type: RX